FAERS Safety Report 14338955 (Version 1)
Quarter: 2017Q4

REPORT INFORMATION
  Report Type: Report from Study
  Country: CA (occurrence: CA)
  Receive Date: 20171230
  Receipt Date: 20171230
  Transmission Date: 20180321
  Serious: Yes (Other)
  Sender: FDA-Public Use
  Company Number: CA-HLSUS-2017-CA-001171

PATIENT
  Age: 26 Year
  Sex: Female

DRUGS (3)
  1. DIVALPROEX [Concomitant]
     Active Substance: DIVALPROEX SODIUM
     Dosage: 1000 MG DAILY
     Route: 048
     Dates: start: 201710
  2. CLOZARIL [Suspect]
     Active Substance: CLOZAPINE
     Indication: SCHIZOAFFECTIVE DISORDER
     Dosage: 300 MG
     Route: 048
     Dates: start: 20171010, end: 20171110
  3. FLUPENTIXOL [Concomitant]
     Active Substance: FLUPENTIXOL
     Dosage: 20 MG FOR 92 WEEKS
     Dates: start: 2017

REACTIONS (1)
  - C-reactive protein increased [Unknown]

NARRATIVE: CASE EVENT DATE: 20171108
